FAERS Safety Report 8453544-X (Version None)
Quarter: 2012Q2

REPORT INFORMATION
  Report Type: 
  Country: None (occurrence: None)
  Receive Date: 20120620
  Receipt Date: 20120613
  Transmission Date: 20120825
  Serious: Yes (Death)
  Sender: FDA-Public Use
  Company Number: US-CELGENEUS-163-21880-12050556

PATIENT
  Sex: Female
  Weight: 59.02 kg

DRUGS (14)
  1. XANAX [Concomitant]
     Indication: ANXIETY
     Dosage: .25 MILLIGRAM
     Route: 048
  2. ACETAMINOPHEN [Concomitant]
     Indication: PAIN
     Route: 065
  3. ARANESP [Concomitant]
     Dosage: 500 MICROGRAM
     Route: 065
  4. REVLIMID [Suspect]
     Indication: MULTIPLE MYELOMA
     Dosage: 25 MILLIGRAM
     Route: 048
     Dates: start: 20081201, end: 20090101
  5. ASPIRIN [Concomitant]
     Dosage: 81 MILLIGRAM
     Route: 065
  6. OMEPRAZOLE [Concomitant]
     Dosage: 20 MILLIGRAM
     Route: 065
  7. OXYCODONE HCL [Concomitant]
     Indication: PAIN
     Route: 065
  8. ALTACE [Concomitant]
     Dosage: 5 MILLIGRAM
     Route: 065
  9. FENTANYL [Concomitant]
     Indication: PAIN
     Dosage: 25 MICROGRAM
     Route: 065
  10. DEXAMETHASONE [Concomitant]
     Dosage: 40 MILLIGRAM
     Route: 065
  11. PLAVIX [Concomitant]
     Route: 065
  12. PAXIL [Concomitant]
     Indication: DEPRESSION
     Dosage: 50 MILLIGRAM
     Route: 065
  13. REVLIMID [Suspect]
     Dosage: 10 MILLIGRAM
     Route: 048
     Dates: start: 20090723, end: 20110101
  14. REVLIMID [Suspect]
     Dosage: 10 MILLIGRAM
     Route: 048
     Dates: start: 20111119, end: 20111219

REACTIONS (1)
  - MULTIPLE MYELOMA [None]
